FAERS Safety Report 8896441 (Version 1)
Quarter: 2012Q4

REPORT INFORMATION
  Report Type: Spontaneous
  Country: US (occurrence: None)
  Receive Date: 20121107
  Receipt Date: 20121107
  Transmission Date: 20130627
  Serious: Yes (Other)
  Sender: FDA-Public Use
  Company Number: None

PATIENT

DRUGS (2)
  1. HEPARIN [Suspect]
     Dosage: vials
     Dates: start: 20121101, end: 20121101
  2. HEPARIN [Suspect]
     Dosage: vials

REACTIONS (2)
  - Product quality issue [None]
  - Drug effect decreased [None]
